FAERS Safety Report 7955547-8 (Version None)
Quarter: 2011Q4

REPORT INFORMATION
  Report Type: 
  Country: None (occurrence: None)
  Receive Date: 20111202
  Receipt Date: 20111122
  Transmission Date: 20120403
  Serious: Yes (Hospitalization, Other)
  Sender: FDA-Public Use
  Company Number: BR-ROCHE-1015717

PATIENT
  Sex: Female

DRUGS (5)
  1. BEROTEC [Concomitant]
  2. CAPTOPRIL [Concomitant]
  3. OMALIZUMAB [Suspect]
     Indication: ASTHMA
     Dates: start: 20110715
  4. ATROVENT [Concomitant]
  5. ALBUTEROL SULFATE AUTOHALER [Concomitant]

REACTIONS (4)
  - NEPHROLITHIASIS [None]
  - GASTROENTERITIS [None]
  - BLOOD PRESSURE INCREASED [None]
  - URINE OUTPUT DECREASED [None]
